FAERS Safety Report 9540312 (Version 1)
Quarter: 2013Q2

REPORT INFORMATION
  Report Type: Spontaneous
  Country: US (occurrence: None)
  Receive Date: 20130531
  Receipt Date: 20130531
  Transmission Date: 20140414
  Serious: Yes (Hospitalization)
  Sender: FDA-Public Use
  Company Number: 359079

PATIENT
  Age: 16 Year
  Sex: Female
  Weight: 38.1 kg

DRUGS (1)
  1. NORDITROPIN [Suspect]
     Indication: GROWTH HORMONE DEFICIENCY
     Dosage: 1.8 MG, 6 NIGHTS PER WEEK, SUBCUTANEOUS
     Route: 058
     Dates: start: 20120603, end: 20120612

REACTIONS (1)
  - Intracranial pressure increased [None]
